FAERS Safety Report 14088093 (Version 1)
Quarter: 2017Q4

REPORT INFORMATION
  Report Type: Report from Study
  Country: US (occurrence: US)
  Receive Date: 20171013
  Receipt Date: 20171013
  Transmission Date: 20180321
  Serious: No
  Sender: FDA-Public Use
  Company Number: US-AMGEN-USASL2017112112

PATIENT
  Sex: Female

DRUGS (7)
  1. CALCIUM [Concomitant]
     Active Substance: CALCIUM
     Dosage: UNK
  2. VITAMIN D [Concomitant]
     Active Substance: CHOLECALCIFEROL
     Dosage: UNK UNK, QD
  3. PROLIA [Suspect]
     Active Substance: DENOSUMAB
     Indication: THYROID CANCER
  4. PROLIA [Suspect]
     Active Substance: DENOSUMAB
     Indication: BREAST CANCER FEMALE
  5. PROLIA [Suspect]
     Active Substance: DENOSUMAB
     Indication: MENOPAUSAL SYMPTOMS
  6. PROLIA [Suspect]
     Active Substance: DENOSUMAB
     Indication: CHRONIC MYELOID LEUKAEMIA
  7. PROLIA [Suspect]
     Active Substance: DENOSUMAB
     Indication: BONE DISORDER
     Dosage: 60 MG, Q6MO
     Route: 058

REACTIONS (1)
  - Off label use [Unknown]
